FAERS Safety Report 16881092 (Version 1)
Quarter: 2019Q4

REPORT INFORMATION
  Report Type: Spontaneous
  Country: US (occurrence: US)
  Receive Date: 20191002
  Receipt Date: 20191002
  Transmission Date: 20200122
  Serious: Yes (Hospitalization)
  Sender: FDA-Public Use
  Company Number: None

PATIENT
  Age: 61 Year
  Sex: Female
  Weight: 81.9 kg

DRUGS (10)
  1. LIDOCAINE. [Suspect]
     Active Substance: LIDOCAINE
     Indication: PAIN MANAGEMENT
     Dosage: ?          OTHER FREQUENCY:1.5MG/ML;?
     Route: 041
     Dates: start: 20190110, end: 20190110
  2. MIDAZOLAM 2MG [Concomitant]
     Dates: start: 20190110, end: 20190110
  3. ACETAMINOPHEN 1G [Concomitant]
     Dates: start: 20190110, end: 20190110
  4. CEFAZOLIN 2G [Concomitant]
     Dates: start: 20190110, end: 20190110
  5. MAGNESIUM 4G [Concomitant]
     Dates: start: 20190110, end: 20190110
  6. PROPOFOL 200MG [Concomitant]
     Dates: start: 20190110, end: 20190110
  7. FENTANYL 100 MCG [Concomitant]
     Active Substance: FENTANYL
     Dates: start: 20190110, end: 20190110
  8. KETAMINE 50MG [Concomitant]
     Dates: start: 20190110, end: 20190110
  9. GABAPENTIN 600MG [Concomitant]
     Active Substance: GABAPENTIN
     Dates: start: 20190110, end: 20190110
  10. EPHEDRINE 25MG [Concomitant]
     Dates: start: 20190110, end: 20190110

REACTIONS (2)
  - Vision blurred [None]
  - Nausea [None]

NARRATIVE: CASE EVENT DATE: 20190110
